FAERS Safety Report 13023690 (Version 1)
Quarter: 2016Q4

REPORT INFORMATION
  Report Type: Spontaneous
  Country: US (occurrence: US)
  Receive Date: 20161212
  Receipt Date: 20161212
  Transmission Date: 20170207
  Serious: Yes (Hospitalization)
  Sender: FDA-Public Use
  Company Number: None

PATIENT
  Age: 92 Year
  Sex: Male

DRUGS (6)
  1. ZYTIGA [Suspect]
     Active Substance: ABIRATERONE ACETATE
     Indication: NEOPLASM MALIGNANT
  2. ZYTIGA [Suspect]
     Active Substance: ABIRATERONE ACETATE
     Indication: ESSENTIAL HYPERTENSION
  3. ZYTIGA [Suspect]
     Active Substance: ABIRATERONE ACETATE
     Indication: INSOMNIA
  4. ZYTIGA [Suspect]
     Active Substance: ABIRATERONE ACETATE
     Indication: CARDIAC DISORDER
  5. ZYTIGA [Suspect]
     Active Substance: ABIRATERONE ACETATE
     Indication: ARTHROPATHY
  6. ZYTIGA [Suspect]
     Active Substance: ABIRATERONE ACETATE
     Indication: PROSTATE CANCER

REACTIONS (2)
  - Complication associated with device [None]
  - Drug dose omission [None]

NARRATIVE: CASE EVENT DATE: 20161212
